FAERS Safety Report 24770215 (Version 2)
Quarter: 2025Q2

REPORT INFORMATION
  Report Type: Spontaneous
  Country: US (occurrence: US)
  Receive Date: 20241224
  Receipt Date: 20250626
  Transmission Date: 20250717
  Serious: No
  Sender: ABBVIE
  Company Number: US-ABBVIE-6058149

PATIENT
  Sex: Female

DRUGS (1)
  1. ARMOUR THYROID [Suspect]
     Active Substance: THYROID, PORCINE
     Indication: Hypothyroidism
     Route: 048

REACTIONS (4)
  - Trichorrhexis [Unknown]
  - Alopecia [Unknown]
  - Hair texture abnormal [Unknown]
  - Dry skin [Unknown]
